FAERS Safety Report 11907422 (Version 2)
Quarter: 2016Q2

REPORT INFORMATION
  Report Type: Spontaneous
  Country: US (occurrence: US)
  Receive Date: 20160111
  Receipt Date: 20160407
  Transmission Date: 20160815
  Serious: Yes (Other)
  Sender: FDA-Public Use
  Company Number: US-SA-2016SA001556

PATIENT
  Age: 91 Year
  Sex: Male
  Weight: 144 kg

DRUGS (9)
  1. SIMVASTATIN. [Concomitant]
     Active Substance: SIMVASTATIN
     Route: 065
  2. TRAVATAN [Concomitant]
     Active Substance: TRAVOPROST
     Dosage: START DATE: 2014-2015
     Dates: start: 2014
  3. TRADJENTA [Concomitant]
     Active Substance: LINAGLIPTIN
     Dates: start: 2014
  4. LANTUS SOLOSTAR [Suspect]
     Active Substance: INSULIN GLARGINE
     Indication: TYPE 2 DIABETES MELLITUS
     Dosage: DOSE:14 UNIT(S)
     Route: 065
  5. SOLOSTAR [Concomitant]
     Active Substance: DEVICE
     Dates: start: 2015
  6. INSULIN [Concomitant]
     Active Substance: INSULIN NOS
     Dosage: DOSE:14 UNIT(S)
     Dates: start: 2015
  7. METOPROLOL. [Concomitant]
     Active Substance: METOPROLOL
     Dates: start: 2000
  8. LANTUS SOLOSTAR [Suspect]
     Active Substance: INSULIN GLARGINE
     Indication: TYPE 2 DIABETES MELLITUS
     Dosage: DOSE:12 UNIT(S)
     Route: 065
     Dates: start: 2015
  9. PREDNISONE. [Concomitant]
     Active Substance: PREDNISONE
     Route: 065

REACTIONS (5)
  - Myalgia [Unknown]
  - Blood glucose increased [Unknown]
  - Arthralgia [Unknown]
  - Blood cholesterol decreased [Unknown]
  - Rheumatoid arthritis [Unknown]

NARRATIVE: CASE EVENT DATE: 2015
